FAERS Safety Report 24456269 (Version 2)
Quarter: 2024Q4

REPORT INFORMATION
  Report Type: Spontaneous
  Country: CN (occurrence: CN)
  Receive Date: 20241017
  Receipt Date: 20241018
  Transmission Date: 20250114
  Serious: No
  Sender: ROCHE
  Company Number: CN-ROCHE-3506231

PATIENT
  Age: 14 Year
  Sex: Female

DRUGS (2)
  1. RITUXIMAB [Suspect]
     Active Substance: RITUXIMAB
     Indication: Demyelination
     Dosage: ONE-WEEK INTERVALS FOR TWO TIMES
     Route: 065
  2. METHYLPREDNISOLONE [Concomitant]
     Active Substance: METHYLPREDNISOLONE
     Dosage: DURATION OF 3 DAYS

REACTIONS (2)
  - Off label use [Unknown]
  - No adverse event [Unknown]
